FAERS Safety Report 5271671-5 (Version None)
Quarter: 2007Q1

REPORT INFORMATION
  Report Type: 
  Country: None (occurrence: None)
  Receive Date: 20070321
  Receipt Date: 20060523
  Transmission Date: 20070707
  Serious: Yes (Other)
  Sender: FDA-Public Use
  Company Number: US-PFIZER INC-2006067763

PATIENT
  Age: 3 Year
  Sex: Female

DRUGS (5)
  1. ZYRTEC [Suspect]
     Indication: HYPERSENSITIVITY
     Route: 065
     Dates: start: 20050101, end: 20060518
  2. TYLENOL [Suspect]
     Indication: ILL-DEFINED DISORDER
     Dosage: TEXT:UNKNOWN-FREQ:UNKNOWN
     Route: 065
  3. FLONASE [Concomitant]
     Route: 065
  4. PULMICORT [Concomitant]
     Route: 065
  5. ALL OTHER THERAPEUTIC PRODUCTS [Concomitant]
     Route: 055

REACTIONS (7)
  - ABDOMINAL PAIN UPPER [None]
  - BACK PAIN [None]
  - HEPATITIS C [None]
  - HYPERSENSITIVITY [None]
  - NIGHT SWEATS [None]
  - PNEUMONIA [None]
  - PYREXIA [None]
